FAERS Safety Report 5141104-8 (Version None)
Quarter: 2006Q4

REPORT INFORMATION
  Report Type: 
  Country: None (occurrence: None)
  Receive Date: 20061026
  Receipt Date: 20061019
  Transmission Date: 20070319
  Serious: Yes (Death, Hospitalization)
  Sender: FDA-Public Use
  Company Number: GXKR2006JP06666

PATIENT
  Sex: Female

DRUGS (2)
  1. RIMACTANE [Suspect]
     Indication: MYCOBACTERIAL INFECTION
     Dosage: 450 MG, ORAL
     Route: 048
     Dates: start: 20060830, end: 20060914
  2. ETHAMBUTOL (NGX) (ETHAMBUTOL) UNKNOWN [Suspect]
     Indication: MYCOBACTERIAL INFECTION
     Dosage: 750 MG, ORAL
     Route: 048
     Dates: start: 20060830, end: 20060914

REACTIONS (4)
  - CARDIO-RESPIRATORY ARREST [None]
  - GENERAL PHYSICAL HEALTH DETERIORATION [None]
  - HAEMOLYTIC ANAEMIA [None]
  - HEPATITIS FULMINANT [None]
